FAERS Safety Report 13810240 (Version 3)
Quarter: 2018Q1

REPORT INFORMATION
  Report Type: Report from Study
  Country: US (occurrence: US)
  Receive Date: 20170728
  Receipt Date: 20180119
  Transmission Date: 20180508
  Serious: No
  Sender: FDA-Public Use
  Company Number: US-AMGEN-USASL2017078395

PATIENT
  Age: 68 Year
  Sex: Male

DRUGS (6)
  1. REPATHA [Suspect]
     Active Substance: EVOLOCUMAB
     Indication: HYPERCHOLESTEROLAEMIA
     Dosage: 140 MG, Q2WK
     Route: 065
  2. REPATHA [Suspect]
     Active Substance: EVOLOCUMAB
     Indication: BLOOD CHOLESTEROL INCREASED
  3. REPATHA [Suspect]
     Active Substance: EVOLOCUMAB
     Indication: LOW DENSITY LIPOPROTEIN INCREASED
     Dosage: 140 MG, Q3WK
     Route: 065
  4. PROVIGIL [Suspect]
     Active Substance: MODAFINIL
     Indication: PRODUCT USED FOR UNKNOWN INDICATION
     Dosage: UNK
     Route: 065
  5. RAPAMUNE [Concomitant]
     Active Substance: SIROLIMUS
     Dosage: UNK
  6. SIROLIMUS. [Concomitant]
     Active Substance: SIROLIMUS
     Dosage: UNK

REACTIONS (13)
  - Nasal congestion [Unknown]
  - Blood calcium abnormal [Unknown]
  - Vision blurred [Unknown]
  - Nausea [Unknown]
  - Neuralgia [Unknown]
  - Sinus congestion [Unknown]
  - Fatigue [Unknown]
  - Lacrimation increased [Unknown]
  - Rhinorrhoea [Unknown]
  - Headache [Unknown]
  - Eye pain [Unknown]
  - Epistaxis [Unknown]
  - Eye irritation [Unknown]
